FAERS Safety Report 15534869 (Version 1)
Quarter: 2018Q4

REPORT INFORMATION
  Report Type: Spontaneous
  Country: GB (occurrence: GB)
  Receive Date: 20181022
  Receipt Date: 20181022
  Transmission Date: 20190205
  Serious: Yes (Hospitalization, Other)
  Sender: FDA-Public Use
  Company Number: GB-TEVA-2018-GB-966485

PATIENT
  Age: 2 Month
  Sex: Male
  Weight: 87.53 kg

DRUGS (5)
  1. DABIGATRAN [Concomitant]
     Active Substance: DABIGATRAN
     Dosage: 300 MILLIGRAM DAILY;
     Route: 065
  2. RAMIPRIL. [Concomitant]
     Active Substance: RAMIPRIL
     Route: 065
  3. ATORVASTATIN [Concomitant]
     Active Substance: ATORVASTATIN
     Route: 065
  4. TAMSULOSIN [Concomitant]
     Active Substance: TAMSULOSIN
     Route: 065
  5. FINASTERIDE. [Suspect]
     Active Substance: FINASTERIDE
     Indication: PROSTATOMEGALY
     Dosage: 5 MILLIGRAM DAILY; WAS TAKEN AT NIGHT. ONLY TWO CAPSULES ACTUALLY TAKEN IN TOTAL
     Route: 048
     Dates: start: 20180816, end: 20180818

REACTIONS (3)
  - Heart rate increased [Unknown]
  - Cardiac flutter [Not Recovered/Not Resolved]
  - Palpitations [Not Recovered/Not Resolved]

NARRATIVE: CASE EVENT DATE: 20180818
